FAERS Safety Report 11739540 (Version 3)
Quarter: 2015Q4

REPORT INFORMATION
  Report Type: Spontaneous
  Country: EG (occurrence: EG)
  Receive Date: 20151113
  Receipt Date: 20151223
  Transmission Date: 20160304
  Serious: Yes (Death, Life-Threatening, Hospitalization)
  Sender: FDA-Public Use
  Company Number: EG-ABBVIE-15P-048-1498916-00

PATIENT
  Age: 1 Day
  Sex: Female

DRUGS (2)
  1. KONAKION [Concomitant]
     Active Substance: PHYTONADIONE
     Indication: PRODUCT USED FOR UNKNOWN INDICATION
     Route: 042
  2. SURVANTA [Suspect]
     Active Substance: BERACTANT
     Indication: NEONATAL RESPIRATORY DISTRESS SYNDROME
     Route: 065
     Dates: start: 20151109

REACTIONS (4)
  - Pulmonary hypertension [Fatal]
  - Pulmonary haemorrhage [Fatal]
  - Cardio-respiratory arrest [Fatal]
  - Haemorrhage intracranial [Fatal]

NARRATIVE: CASE EVENT DATE: 20151110
